FAERS Safety Report 9948503 (Version 1)
Quarter: 2014Q1

REPORT INFORMATION
  Report Type: Report from Study
  Country: US (occurrence: US)
  Receive Date: 20140303
  Receipt Date: 20140303
  Transmission Date: 20141002
  Serious: No
  Sender: FDA-Public Use
  Company Number: US-ABBVIE-13P-163-1059452-00

PATIENT
  Age: 48 Year
  Sex: Female
  Weight: 89.89 kg

DRUGS (4)
  1. HUMIRA [Suspect]
     Indication: PSORIATIC ARTHROPATHY
     Dates: start: 20121218
  2. VITAMIN D [Concomitant]
     Indication: VITAMIN D DEFICIENCY
  3. OSTEO-BIFLEX [Concomitant]
     Indication: MINERAL SUPPLEMENTATION
  4. BIRTH CONTROL [Concomitant]
     Indication: CONTRACEPTION

REACTIONS (3)
  - Incorrect dose administered [Not Recovered/Not Resolved]
  - Arthralgia [Recovered/Resolved]
  - Injection site pain [Not Recovered/Not Resolved]
